FAERS Safety Report 11635493 (Version 7)
Quarter: 2017Q3

REPORT INFORMATION
  Report Type: Report from Study
  Country: DE (occurrence: DE)
  Receive Date: 20151016
  Receipt Date: 20170829
  Transmission Date: 20171127
  Serious: Yes (Death, Hospitalization, Other)
  Sender: FDA-Public Use
  Company Number: DE-ROCHE-1645015

PATIENT
  Age: 67 Year
  Sex: Female
  Weight: 86 kg

DRUGS (1)
  1. TRASTUZUMAB. [Suspect]
     Active Substance: TRASTUZUMAB
     Indication: HER-2 POSITIVE BREAST CANCER
     Dosage: ON 18/SEP/2015 SHE HAD LATEST SUBCUTANEOUS TRASTUZUMAB ADMINISTRATION.
     Route: 058
     Dates: start: 20150807, end: 20151029

REACTIONS (12)
  - Fall [Unknown]
  - Subcutaneous haematoma [Recovering/Resolving]
  - Headache [Not Recovered/Not Resolved]
  - Partial seizures [Not Recovered/Not Resolved]
  - Optic neuropathy [Not Recovered/Not Resolved]
  - Retinal vein thrombosis [Not Recovered/Not Resolved]
  - Papilloedema [Not Recovered/Not Resolved]
  - Neurological decompensation [Not Recovered/Not Resolved]
  - Atrial fibrillation [Unknown]
  - General physical health deterioration [Fatal]
  - Hypertension [Recovering/Resolving]
  - Atrial fibrillation [Not Recovered/Not Resolved]

NARRATIVE: CASE EVENT DATE: 20150910
